FAERS Safety Report 11678866 (Version 1)
Quarter: 2015Q4

REPORT INFORMATION
  Report Type: Spontaneous
  Country: US (occurrence: US)
  Receive Date: 20151027
  Receipt Date: 20151027
  Transmission Date: 20160304
  Serious: No
  Sender: FDA-Public Use
  Company Number: US-ELI_LILLY_AND_COMPANY-US201011004554

PATIENT
  Age: 44 Year
  Sex: Female

DRUGS (1)
  1. FORTEO [Suspect]
     Active Substance: TERIPARATIDE
     Indication: OSTEOPOROSIS
     Dosage: 20 UG, DAILY (1/D)
     Dates: start: 20101025

REACTIONS (8)
  - Movement disorder [Unknown]
  - Muscle spasms [Unknown]
  - Discomfort [Unknown]
  - Myalgia [Unknown]
  - Insomnia [Unknown]
  - Pain in extremity [Unknown]
  - Neuralgia [Unknown]
  - Muscle spasms [Unknown]

NARRATIVE: CASE EVENT DATE: 201011
